FAERS Safety Report 20010964 (Version 1)
Quarter: 2021Q4

REPORT INFORMATION
  Report Type: Other
  Country: AT (occurrence: AT)
  Receive Date: 20211029
  Receipt Date: 20211029
  Transmission Date: 20220303
  Serious: Yes (Other)
  Sender: FDA-Public Use
  Company Number: AT-CELLTRION INC.-2021AT012861

PATIENT

DRUGS (12)
  1. RITUXIMAB [Suspect]
     Active Substance: RITUXIMAB
     Indication: Follicular lymphoma
     Dosage: UNK
     Route: 065
     Dates: start: 20210518, end: 20210616
  2. RITUXIMAB [Suspect]
     Active Substance: RITUXIMAB
     Indication: Diffuse large B-cell lymphoma
     Dosage: UNK
     Route: 065
     Dates: start: 20210316, end: 20210427
  3. OBINUTUZUMAB [Suspect]
     Active Substance: OBINUTUZUMAB
     Indication: Diffuse large B-cell lymphoma
     Dosage: UNK
     Route: 065
     Dates: start: 20200708, end: 20201223
  4. POLATUZUMAB VEDOTIN [Suspect]
     Active Substance: POLATUZUMAB VEDOTIN
     Indication: Diffuse large B-cell lymphoma
     Dosage: UNK
     Route: 065
     Dates: start: 20210805, end: 20210826
  5. PREDNISONE [Concomitant]
     Active Substance: PREDNISONE
  6. ETOPOSIDE [Concomitant]
     Active Substance: ETOPOSIDE
  7. CYCLOPHOSPHAMIDE [Concomitant]
     Active Substance: CYCLOPHOSPHAMIDE
  8. DOXORUBICIN [Concomitant]
     Active Substance: DOXORUBICIN
  9. BENDAMUSTINE HYDROCHLORIDE [Concomitant]
     Active Substance: BENDAMUSTINE HYDROCHLORIDE
  10. VINCRISTINE [Concomitant]
     Active Substance: VINCRISTINE
  11. IFOSFAMIDE [Concomitant]
     Active Substance: IFOSFAMIDE
  12. CARBOPLATIN [Concomitant]
     Active Substance: CARBOPLATIN

REACTIONS (3)
  - Asymptomatic COVID-19 [Recovered/Resolved]
  - Blood lactate dehydrogenase increased [Unknown]
  - Drug ineffective [Unknown]
